FAERS Safety Report 5533681-X (Version None)
Quarter: 2007Q4

REPORT INFORMATION
  Report Type: 
  Country: None (occurrence: None)
  Receive Date: 20071204
  Receipt Date: 20071126
  Transmission Date: 20080405
  Serious: Yes (Death, Hospitalization)
  Sender: FDA-Public Use
  Company Number: TR-ELI_LILLY_AND_COMPANY-TR200711006325

PATIENT
  Age: 69 Year
  Sex: Female
  Weight: 110 kg

DRUGS (4)
  1. HUMULIN N [Suspect]
     Dosage: 12 IU, MORNING DOSE
     Route: 058
     Dates: start: 20070717, end: 20070729
  2. ISOPTIN [Concomitant]
     Indication: CARDIAC DISORDER
     Dosage: UNK, 2/D
     Route: 048
     Dates: start: 20040101
  3. CORASPIN [Concomitant]
     Indication: ANTICOAGULANT THERAPY
     Dosage: UNKNOWN, 3/D
     Route: 048
     Dates: start: 20040101
  4. ANTIHYPERTENSIVES [Concomitant]
     Indication: HYPERTENSION
     Dosage: UNK, 3/D
     Route: 048

REACTIONS (1)
  - RENAL FAILURE [None]
